FAERS Safety Report 8224308-7 (Version None)
Quarter: 2012Q1

REPORT INFORMATION
  Report Type: 
  Country: None (occurrence: None)
  Receive Date: 20120321
  Receipt Date: 20120314
  Transmission Date: 20120608
  Serious: Yes (Other)
  Sender: FDA-Public Use
  Company Number: PHHY2012FR006050

PATIENT
  Sex: Male

DRUGS (4)
  1. RASILEZ [Suspect]
     Indication: HYPERTENSION
     Dosage: 300 MG, QD
     Route: 048
     Dates: start: 20110412, end: 20110704
  2. PROCORALAN [Concomitant]
     Dosage: 7.5 MG, DAILY
     Route: 048
  3. EUPRESSYL [Concomitant]
     Dosage: 30 MG, DAILY
     Route: 048
  4. TAMSULOSIN HCL [Concomitant]
     Dosage: 0.4 MG, DAILY
     Route: 048

REACTIONS (1)
  - RENAL FAILURE [None]
